FAERS Safety Report 5399969-0 (Version None)
Quarter: 2007Q3

REPORT INFORMATION
  Report Type: 
  Country: None (occurrence: None)
  Receive Date: 20070726
  Receipt Date: 20070726
  Transmission Date: 20080115
  Serious: Yes (Disabling)
  Sender: FDA-Public Use
  Company Number: None

PATIENT
  Sex: Female
  Weight: 59.4212 kg

DRUGS (3)
  1. FOSAMAX [Suspect]
     Indication: OSTEOPOROSIS
     Dosage: 70 MG ONCE/WK PO
     Route: 048
     Dates: start: 20060517, end: 20070601
  2. DETROL LA [Concomitant]
  3. EVISTA [Concomitant]

REACTIONS (3)
  - BONE DISORDER [None]
  - JAW DISORDER [None]
  - TOOTH EXTRACTION [None]
